FAERS Safety Report 7440291-6 (Version None)
Quarter: 2011Q2

REPORT INFORMATION
  Report Type: 
  Country: None (occurrence: None)
  Receive Date: 20110427
  Receipt Date: 20110426
  Transmission Date: 20111010
  Serious: Yes (Other)
  Sender: FDA-Public Use
  Company Number: PHHY2011GB30604

PATIENT
  Age: 48 Year
  Sex: Male

DRUGS (7)
  1. CYCLOSPORINE [Suspect]
     Indication: HEART TRANSPLANT
     Dosage: 375 MG,/DAY
  2. METHYLPREDNISOLONE [Suspect]
     Indication: HEART TRANSPLANT
  3. PREDNISOLONE [Suspect]
     Indication: HEART TRANSPLANT
     Dosage: 1 MG/KG/DAY
  4. PREDNISOLONE [Suspect]
     Dosage: 0.2 MG/KG/DAY
  5. ANTITHYMOCYTE IMMUNOGLOBULIN [Suspect]
     Indication: HEART TRANSPLANT
  6. PREDNISOLONE [Suspect]
     Dosage: 0.1 MG/KG/DAY
  7. MYCOPHENOLATE MOFETIL [Suspect]
     Indication: HEART TRANSPLANT
     Dosage: 2.25 G/DAY

REACTIONS (6)
  - CHEST PAIN [None]
  - CYTOMEGALOVIRUS INFECTION [None]
  - HEART RATE INCREASED [None]
  - AORTIC DISSECTION [None]
  - BLOOD PRESSURE INCREASED [None]
  - ABDOMINAL TENDERNESS [None]
